FAERS Safety Report 13374763 (Version 1)
Quarter: 2017Q1

REPORT INFORMATION
  Report Type: Spontaneous
  Country: US (occurrence: US)
  Receive Date: 20170327
  Receipt Date: 20170327
  Transmission Date: 20170429
  Serious: No
  Sender: FDA-Public Use
  Company Number: None

PATIENT
  Age: 81 Year
  Sex: Male
  Weight: 86.26 kg

DRUGS (13)
  1. TENAZOSIN [Concomitant]
  2. ARTHRITIS TYLENOL [Concomitant]
  3. LYSINOPRIL [Concomitant]
  4. GLIPIZIDE. [Concomitant]
     Active Substance: GLIPIZIDE
  5. OMEPRAZOLE. [Concomitant]
     Active Substance: OMEPRAZOLE
  6. AMLODIPINE [Concomitant]
     Active Substance: AMLODIPINE BESYLATE
  7. METFORMIN [Concomitant]
     Active Substance: METFORMIN HYDROCHLORIDE
  8. CIALIS [Concomitant]
     Active Substance: TADALAFIL
  9. NITROSTAT [Concomitant]
     Active Substance: NITROGLYCERIN
  10. FISH OIL TABS [Concomitant]
  11. COREG [Concomitant]
     Active Substance: CARVEDILOL
  12. KOMBIGLYZE XR [Suspect]
     Active Substance: METFORMIN HYDROCHLORIDE\SAXAGLIPTIN HYDROCHLORIDE
     Indication: TYPE 2 DIABETES MELLITUS
     Route: 048
     Dates: start: 2016, end: 2017
  13. BABY ASPERIN [Concomitant]

REACTIONS (5)
  - Diarrhoea [None]
  - Erythema [None]
  - Pain [None]
  - Penile blister [None]
  - Wound [None]

NARRATIVE: CASE EVENT DATE: 20170201
